FAERS Safety Report 9095717 (Version 1)
Quarter: 2013Q1

REPORT INFORMATION
  Report Type: Spontaneous
  Country: DE (occurrence: None)
  Receive Date: 20130124
  Receipt Date: 20130124
  Transmission Date: 20140127
  Serious: Yes (Other)
  Sender: FDA-Public Use
  Company Number: GER/GER/13/0027498

PATIENT
  Sex: Male
  Weight: 3.86 kg

DRUGS (2)
  1. SERTRALINE (SERTRALINE) (SERTRALINE) [Suspect]
     Indication: PRODUCT USED FOR UNKNOWN INDICATION
     Route: 064
     Dates: start: 20090811, end: 20100506
  2. FOLSAURE (FOLIC ACID) [Concomitant]

REACTIONS (5)
  - Agitation [None]
  - Maternal drugs affecting foetus [None]
  - Exposure during breast feeding [None]
  - Tremor [None]
  - Muscle twitching [None]
